FAERS Safety Report 23395778 (Version 2)
Quarter: 2024Q1

REPORT INFORMATION
  Report Type: Spontaneous
  Country: CN (occurrence: CN)
  Receive Date: 20240112
  Receipt Date: 20240112
  Transmission Date: 20240409
  Serious: Yes (Hospitalization, Other)
  Sender: FDA-Public Use
  Company Number: CN-ORG100014127-2024000001

PATIENT
  Age: 52 Year
  Sex: Female

DRUGS (2)
  1. MITOTANE [Suspect]
     Active Substance: MITOTANE
     Indication: Adrenocortical carcinoma
     Route: 048
     Dates: start: 20231121
  2. MITOTANE [Suspect]
     Active Substance: MITOTANE
     Indication: Adrenocortical carcinoma
     Route: 048
     Dates: start: 202312

REACTIONS (5)
  - Hepatic failure [Unknown]
  - Hepatocellular injury [Unknown]
  - Hepatic function abnormal [Unknown]
  - Asthenia [Unknown]
  - Tinnitus [Unknown]

NARRATIVE: CASE EVENT DATE: 20231201
